FAERS Safety Report 21271127 (Version 10)
Quarter: 2022Q4

REPORT INFORMATION
  Report Type: Report from Study
  Country: US (occurrence: US)
  Receive Date: 20220830
  Receipt Date: 20221118
  Transmission Date: 20230113
  Serious: Yes (Hospitalization, Other)
  Sender: FDA-Public Use
  Company Number: US-JNJFOC-20220835890

PATIENT
  Age: 45 Year
  Sex: Female
  Weight: 132.4 kg

DRUGS (6)
  1. EPOPROSTENOL SODIUM [Suspect]
     Active Substance: EPOPROSTENOL SODIUM
     Indication: Pulmonary arterial hypertension
     Route: 042
  2. EPOPROSTENOL SODIUM [Suspect]
     Active Substance: EPOPROSTENOL SODIUM
     Dosage: VELETRI 1.5MG VIAL INTRAVENOUS CONTINUOUS
     Route: 042
  3. REMODULIN [Suspect]
     Active Substance: TREPROSTINIL
     Indication: Product used for unknown indication
     Route: 058
  4. AMBRISENTAN [Concomitant]
     Active Substance: AMBRISENTAN
  5. ELIQUIS [Concomitant]
     Active Substance: APIXABAN
  6. REVATIO [Concomitant]
     Active Substance: SILDENAFIL CITRATE

REACTIONS (14)
  - Device related infection [Unknown]
  - Cardiac failure congestive [Unknown]
  - Post procedural haemorrhage [Unknown]
  - Haemorrhoid operation [Unknown]
  - Gastric ulcer [Unknown]
  - Peripheral swelling [Not Recovered/Not Resolved]
  - Blood creatinine increased [Unknown]
  - Oedema [Unknown]
  - Overweight [Unknown]
  - COVID-19 [Unknown]
  - Tooth disorder [Unknown]
  - Nausea [Unknown]
  - Injection site pain [Unknown]
  - Epistaxis [Unknown]

NARRATIVE: CASE EVENT DATE: 20211201
